FAERS Safety Report 5370972-X (Version None)
Quarter: 2007Q2

REPORT INFORMATION
  Report Type: 
  Country: None (occurrence: None)
  Receive Date: 20070626
  Receipt Date: 20070615
  Transmission Date: 20071010
  Serious: Yes (Hospitalization)
  Sender: FDA-Public Use
  Company Number: KR-PFIZER INC-2007035086

PATIENT
  Sex: Female
  Weight: 51 kg

DRUGS (4)
  1. SU-011,248 [Suspect]
     Indication: GASTROINTESTINAL STROMAL TUMOUR
     Route: 048
  2. NIMESULIDE [Concomitant]
     Route: 048
     Dates: start: 20070413, end: 20070425
  3. ULTRACET [Concomitant]
     Route: 048
     Dates: start: 20070413, end: 20070425
  4. ALL OTHER THERAPEUTIC PRODUCTS [Concomitant]
     Route: 048
     Dates: start: 20070413, end: 20070425

REACTIONS (1)
  - DUODENAL ULCER [None]
